FAERS Safety Report 20946078 (Version 3)
Quarter: 2022Q2

REPORT INFORMATION
  Report Type: Spontaneous
  Country: US (occurrence: US)
  Receive Date: 20220610
  Receipt Date: 20220629
  Transmission Date: 20220720
  Serious: No
  Sender: FDA-Public Use
  Company Number: US-PFIZER INC-202200815198

PATIENT
  Age: 66 Year
  Sex: Female
  Weight: 56.249 kg

DRUGS (1)
  1. PAXLOVID [Suspect]
     Active Substance: NIRMATRELVIR\RITONAVIR
     Indication: COVID-19 treatment
     Dosage: 3 DF, 2X/DAY (TWICE DAILY PRESCRIBED DOSAGE)
     Route: 048
     Dates: start: 20220519, end: 20220524

REACTIONS (2)
  - Disease recurrence [Recovering/Resolving]
  - COVID-19 [Recovering/Resolving]

NARRATIVE: CASE EVENT DATE: 20220601
